FAERS Safety Report 15310455 (Version 1)
Quarter: 2018Q3

REPORT INFORMATION
  Report Type: Spontaneous
  Country: US (occurrence: US)
  Receive Date: 20180813
  Receipt Date: 20180813
  Transmission Date: 20181010
  Serious: Yes (Hospitalization, Disabling)
  Sender: FDA-Public Use
  Company Number: None

PATIENT
  Age: 52 Year
  Sex: Male
  Weight: 134.4 kg

DRUGS (21)
  1. FUROSEMIDE. [Concomitant]
     Active Substance: FUROSEMIDE
  2. GAMUNEX?C [Suspect]
     Active Substance: HUMAN IMMUNOGLOBULIN G
     Indication: CHRONIC INFLAMMATORY DEMYELINATING POLYRADICULONEUROPATHY
     Route: 041
     Dates: start: 20180726, end: 20180726
  3. GABOBENATE DIMEGLUMINE [Concomitant]
  4. METOPROLOL TARTRATE. [Concomitant]
     Active Substance: METOPROLOL TARTRATE
  5. BUMETANIDE. [Concomitant]
     Active Substance: BUMETANIDE
  6. SEVELAMER [Concomitant]
     Active Substance: SEVELAMER
  7. CHOLECALCIFEROL [Concomitant]
     Active Substance: CHOLECALCIFEROL
  8. HEPARIN [Concomitant]
     Active Substance: HEPARIN SODIUM
  9. MINOXIDIL. [Concomitant]
     Active Substance: MINOXIDIL
  10. CLONIDINE. [Concomitant]
     Active Substance: CLONIDINE
  11. INSULIN LISPRO [Concomitant]
     Active Substance: INSULIN LISPRO
  12. ACETAMINOPHEN. [Concomitant]
     Active Substance: ACETAMINOPHEN
  13. POLYETHYLENE GLYCOL [Concomitant]
     Active Substance: POLYETHYLENE GLYCOLS
  14. GAMUNEX?C [Suspect]
     Active Substance: HUMAN IMMUNOGLOBULIN G
     Indication: CHRONIC INFLAMMATORY DEMYELINATING POLYRADICULONEUROPATHY
     Route: 041
     Dates: start: 20180727, end: 20180730
  15. INSULIN GLARGINE [Concomitant]
     Active Substance: INSULIN GLARGINE
  16. SENNA [Concomitant]
     Active Substance: SENNA LEAF\SENNOSIDES\SENNOSIDES A AND B
  17. BISACODYL. [Concomitant]
     Active Substance: BISACODYL
  18. VALSARTAN?HYDROCHLOROTHIAZIDE [Concomitant]
     Active Substance: HYDROCHLOROTHIAZIDE\VALSARTAN
  19. DOCUSATE SODIUM. [Concomitant]
     Active Substance: DOCUSATE SODIUM
  20. DIPHENHYDRAMINE. [Concomitant]
     Active Substance: DIPHENHYDRAMINE
  21. OMEPRAZOLE. [Concomitant]
     Active Substance: OMEPRAZOLE

REACTIONS (5)
  - Dysarthria [None]
  - Loss of personal independence in daily activities [None]
  - Cerebrovascular accident [None]
  - Facial paralysis [None]
  - Mobility decreased [None]

NARRATIVE: CASE EVENT DATE: 20180806
